FAERS Safety Report 25711337 (Version 1)
Quarter: 2025Q3

REPORT INFORMATION
  Report Type: Spontaneous
  Country: US (occurrence: None)
  Receive Date: 20250821
  Receipt Date: 20250821
  Transmission Date: 20251020
  Serious: Yes (unspecified)
  Sender: FDA-CTU
  Company Number: None

PATIENT
  Age: 28 Year
  Sex: Female

DRUGS (1)
  1. HUMIRA [Suspect]
     Active Substance: ADALIMUMAB
     Indication: Psoriasis
     Dosage: 40MG EVERY OTHER WEEK SUBCUTANEOUS?
     Route: 058
     Dates: start: 20240522, end: 20250821

REACTIONS (3)
  - Rash [None]
  - Abdominal discomfort [None]
  - Therapy interrupted [None]

NARRATIVE: CASE EVENT DATE: 20250821
